FAERS Safety Report 4316182-6 (Version None)
Quarter: 2004Q1

REPORT INFORMATION
  Report Type: 
  Country: None (occurrence: None)
  Receive Date: 20040312
  Receipt Date: 20040205
  Transmission Date: 20041129
  Serious: Yes (Hospitalization)
  Sender: FDA-Public Use
  Company Number: WAES 0402GBR00091

PATIENT
  Age: 37 Year
  Sex: Female
  Weight: 76 kg

DRUGS (2)
  1. PARAMAX [Concomitant]
     Dates: end: 20000922
  2. MAXALT [Suspect]
     Indication: MIGRAINE
     Route: 048
     Dates: start: 20000907, end: 20000907

REACTIONS (2)
  - CARDIAC FAILURE [None]
  - FATIGUE [None]
